FAERS Safety Report 7764536-8 (Version None)
Quarter: 2011Q3

REPORT INFORMATION
  Report Type: 
  Country: None (occurrence: None)
  Receive Date: 20110921
  Receipt Date: 20110915
  Transmission Date: 20111222
  Serious: Yes (Hospitalization)
  Sender: FDA-Public Use
  Company Number: JP-PFIZER INC-2011200246

PATIENT
  Age: 82 Year
  Sex: Male
  Weight: 62 kg

DRUGS (19)
  1. THEO-DUR [Concomitant]
     Dosage: 100 MG, 2X/DAY
     Route: 048
  2. SITAGLIPTIN [Concomitant]
     Dosage: 100 MG, 1X/DAY
     Route: 048
  3. ISOSORBIDE DINITRATE [Concomitant]
     Dosage: 40 MG, 1X/DAY
  4. LANSOPRAZOLE [Concomitant]
     Dosage: 15 MG, 1X/DAY
     Route: 048
  5. PRAVASTATIN SODIUM [Concomitant]
     Dosage: 5 MG, 1X/DAY
     Route: 048
  6. DEPAKENE [Concomitant]
     Dosage: 200 MG, 3X/DAY
     Route: 048
  7. ALDACTONE [Concomitant]
     Dosage: 25 MG, 1X/DAY
     Route: 048
  8. LENDORMIN [Concomitant]
     Dosage: 0.25 MG, 1X/DAY
     Route: 048
  9. LYRICA [Suspect]
     Dosage: 150 MG/DAY
     Route: 048
     Dates: start: 20110805, end: 20110811
  10. ASPIRIN [Concomitant]
     Dosage: 100 MG, 1X/DAY
     Route: 048
  11. ISOSORBIDE MONONITRATE [Concomitant]
     Dosage: 20 MG, 2X/DAY
     Route: 048
  12. TAMSULOSIN HCL [Concomitant]
     Dosage: 0.2 MG, 1X/DAY
     Route: 048
  13. JUVELA [Concomitant]
     Dosage: 100 MG, 3X/DAY
     Route: 048
  14. GOSYAZINKIGAN [Concomitant]
     Dosage: UNK
  15. METHYCOBAL [Concomitant]
     Dosage: 500 UG, 3X/DAY
     Route: 048
  16. LYRICA [Suspect]
     Dosage: 225 MG/DAY
     Route: 048
     Dates: start: 20110812, end: 20110831
  17. HYZAAR [Concomitant]
     Dosage: UNK
     Route: 048
  18. AMARYL [Concomitant]
     Dosage: 0.5 MG, 1X/DAY
     Route: 048
  19. MAGMITT [Concomitant]
     Dosage: 330 MG, 3X/DAY
     Route: 048

REACTIONS (2)
  - THIRST [None]
  - ORAL DISCOMFORT [None]
